FAERS Safety Report 9089764 (Version 1)
Quarter: 2013Q1

REPORT INFORMATION
  Report Type: Spontaneous
  Country: US (occurrence: US)
  Receive Date: 20130131
  Receipt Date: 20130131
  Transmission Date: 20140127
  Serious: No
  Sender: FDA-Public Use
  Company Number: US-ABBOTT-12P-163-1015166-00

PATIENT
  Age: 39 Year
  Sex: Female

DRUGS (5)
  1. HUMIRA [Suspect]
     Indication: ANKYLOSING SPONDYLITIS
     Dates: start: 20120214
  2. SULFAZINE [Concomitant]
     Indication: LOCALISED OEDEMA
  3. LYRICA [Concomitant]
     Indication: PAIN
     Dosage: 50MG DAILY
  4. TRAZODONE [Concomitant]
     Indication: INSOMNIA
  5. ATIVAN [Concomitant]
     Indication: ANXIETY

REACTIONS (5)
  - Drug dose omission [Not Recovered/Not Resolved]
  - Drug ineffective [Not Recovered/Not Resolved]
  - Pain [Not Recovered/Not Resolved]
  - Ulcer haemorrhage [Not Recovered/Not Resolved]
  - Nausea [Not Recovered/Not Resolved]
